FAERS Safety Report 23393283 (Version 1)
Quarter: 2024Q1

REPORT INFORMATION
  Report Type: Spontaneous
  Country: US (occurrence: None)
  Receive Date: 20240111
  Receipt Date: 20240111
  Transmission Date: 20240409
  Serious: Yes (Life-Threatening)
  Sender: FDA-Public Use
  Company Number: None

PATIENT
  Age: 35 Year
  Sex: Female
  Weight: 100.35 kg

DRUGS (2)
  1. CYTOTEC [Suspect]
     Active Substance: MISOPROSTOL
     Indication: Premature rupture of membranes
     Dosage: OTHER FREQUENCY : EVERY 3 HOURS;?
     Route: 002
     Dates: start: 20240109, end: 20240109
  2. CYTOTEC [Suspect]
     Active Substance: MISOPROSTOL
     Indication: Prophylaxis

REACTIONS (2)
  - Abortion incomplete complicated [None]
  - Retained placenta operation [None]

NARRATIVE: CASE EVENT DATE: 20240109
